FAERS Safety Report 9299323 (Version 1)
Quarter: 2013Q2

REPORT INFORMATION
  Report Type: Spontaneous
  Country: US (occurrence: US)
  Receive Date: 20130520
  Receipt Date: 20130520
  Transmission Date: 20140414
  Serious: No
  Sender: FDA-Public Use
  Company Number: US-009507513-1305USA005581

PATIENT
  Sex: Female

DRUGS (3)
  1. NASONEX [Suspect]
     Indication: TINNITUS
     Dosage: 1 SPRAY TAKEN IN THE MORNING AND ONE AT NIGHT
  2. NASONEX [Suspect]
     Indication: AURICULAR SWELLING
  3. NASONEX [Suspect]
     Indication: NASAL CONGESTION

REACTIONS (5)
  - Dizziness [Unknown]
  - Feeling abnormal [Unknown]
  - Product quality issue [Unknown]
  - Drug ineffective [Unknown]
  - Off label use [Unknown]
